FAERS Safety Report 5574119-6 (Version None)
Quarter: 2007Q4

REPORT INFORMATION
  Report Type: 
  Country: None (occurrence: None)
  Receive Date: 20071221
  Receipt Date: 20071207
  Transmission Date: 20080405
  Serious: Yes (Hospitalization)
  Sender: FDA-Public Use
  Company Number: 64933

PATIENT
  Age: 73 Year
  Sex: Female

DRUGS (5)
  1. NAPROXEN [Suspect]
     Indication: PAIN
     Dosage: 1000MG/ QD/ ORAL
     Route: 048
     Dates: end: 20060903
  2. ATENOLOL [Concomitant]
  3. ATORVASTATIN CALCIUM [Concomitant]
  4. DOXAZOSIN/4MG [Concomitant]
  5. INDAPAMIDE/1.5MG [Concomitant]

REACTIONS (1)
  - UPPER GASTROINTESTINAL HAEMORRHAGE [None]
